FAERS Safety Report 11540679 (Version 1)
Quarter: 2015Q3

REPORT INFORMATION
  Report Type: Spontaneous
  Country: US (occurrence: US)
  Receive Date: 20150923
  Receipt Date: 20150923
  Transmission Date: 20151125
  Serious: No
  Sender: FDA-Public Use
  Company Number: US-BEH-2014047514

PATIENT
  Age: 52 Year
  Sex: Female
  Weight: 115 kg

DRUGS (45)
  1. ZITHROMAX [Concomitant]
     Active Substance: AZITHROMYCIN DIHYDRATE
  2. DIPHENHYDRAMINE. [Concomitant]
     Active Substance: DIPHENHYDRAMINE
  3. AMBIEN [Concomitant]
     Active Substance: ZOLPIDEM TARTRATE
  4. BECLOMETHASONE [Concomitant]
     Active Substance: BECLOMETHASONE
  5. ENBREL [Concomitant]
     Active Substance: ETANERCEPT
  6. NORTRIPTYLIN [Concomitant]
     Active Substance: NORTRIPTYLINE
  7. L-M-X [Concomitant]
  8. PRAVACHOL [Concomitant]
     Active Substance: PRAVASTATIN SODIUM
  9. VALIUM [Concomitant]
     Active Substance: DIAZEPAM
  10. FOLIC ACID. [Concomitant]
     Active Substance: FOLIC ACID
  11. ERYTHROMYCIN. [Concomitant]
     Active Substance: ERYTHROMYCIN
  12. ACETAMINNOPHEN [Concomitant]
  13. EPIPEN [Concomitant]
     Active Substance: EPINEPHRINE
  14. CIPRO [Concomitant]
     Active Substance: CIPROFLOXACIN HYDROCHLORIDE
  15. SINGULAIR [Concomitant]
     Active Substance: MONTELUKAST SODIUM
  16. PRILOSEC [Concomitant]
     Active Substance: OMEPRAZOLE MAGNESIUM
  17. KEPPRA [Concomitant]
     Active Substance: LEVETIRACETAM
  18. LIDOCAINE-HC [Concomitant]
  19. TYLENOL [Concomitant]
     Active Substance: ACETAMINOPHEN
  20. PRIVIGEN [Suspect]
     Active Substance: HUMAN IMMUNOGLOBULIN G
     Indication: BEHCET^S SYNDROME
     Route: 042
  21. ZOFRAN [Concomitant]
     Active Substance: ONDANSETRON HYDROCHLORIDE
  22. MIRALAX [Concomitant]
     Active Substance: POLYETHYLENE GLYCOL 3350
  23. FISH OIL [Concomitant]
     Active Substance: FISH OIL
  24. PREDNISONE. [Concomitant]
     Active Substance: PREDNISONE
  25. CYMBALTA [Concomitant]
     Active Substance: DULOXETINE HYDROCHLORIDE
  26. EFFEXOR [Concomitant]
     Active Substance: VENLAFAXINE HYDROCHLORIDE
  27. THALOMID [Concomitant]
     Active Substance: THALIDOMIDE
  28. ALBUTEROL. [Concomitant]
     Active Substance: ALBUTEROL
  29. PRIVIGEN [Suspect]
     Active Substance: HUMAN IMMUNOGLOBULIN G
     Indication: BEHCET^S SYNDROME
     Route: 042
  30. BACLOFEN. [Concomitant]
     Active Substance: BACLOFEN
  31. FLONASE [Concomitant]
     Active Substance: FLUTICASONE PROPIONATE
  32. SENNA [Concomitant]
     Active Substance: SENNA LEAF\SENNOSIDES\SENNOSIDES A AND B
  33. SAVELLA [Concomitant]
     Active Substance: MILNACIPRAN HYDROCHLORIDE
  34. FLOMAX [Concomitant]
     Active Substance: TAMSULOSIN HYDROCHLORIDE
  35. ASPIRIN. [Concomitant]
     Active Substance: ASPIRIN
  36. XYLOCAINE [Concomitant]
     Active Substance: LIDOCAINE HYDROCHLORIDE
  37. QVAR [Concomitant]
     Active Substance: BECLOMETHASONE DIPROPIONATE
  38. LEVOFLOXACIN. [Concomitant]
     Active Substance: LEVOFLOXACIN
  39. HYDROCODON ACETAMINOPHEN [Concomitant]
  40. TEMOVATE [Concomitant]
     Active Substance: CLOBETASOL PROPIONATE
  41. DANTRIUM [Concomitant]
     Active Substance: DANTROLENE SODIUM
  42. SODIUM CHLORIDE. [Concomitant]
     Active Substance: SODIUM CHLORIDE
  43. MULTIVITAMIN [Concomitant]
     Active Substance: VITAMINS
  44. CALCIUM 600+ D TABLET [Concomitant]
  45. KLONOPIN [Concomitant]
     Active Substance: CLONAZEPAM

REACTIONS (1)
  - Urinary tract infection [Unknown]

NARRATIVE: CASE EVENT DATE: 20141216
